APPROVED DRUG PRODUCT: LINEZOLID
Active Ingredient: LINEZOLID
Strength: 600MG/300ML (2MG/ML)
Dosage Form/Route: SOLUTION;INTRAVENOUS
Application: A205442 | Product #001
Applicant: HOSPIRA INC
Approved: Jul 7, 2015 | RLD: No | RS: No | Type: DISCN